FAERS Safety Report 8896602 (Version 1)
Quarter: 2012Q4

REPORT INFORMATION
  Report Type: 
  Country: US (occurrence: US)
  Receive Date: 20121108
  Receipt Date: 20121108
  Transmission Date: 20130627
  Serious: No
  Sender: FDA-Public Use
  Company Number: US-AMGEN-USASP2012023929

PATIENT
  Age: 36 Year
  Sex: Female

DRUGS (11)
  1. ENBREL [Suspect]
     Indication: RHEUMATOID ARTHRITIS
     Dosage: 50 mg, qwk
  2. ARAVA [Concomitant]
     Dosage: 10 mg, UNK
     Route: 048
  3. OPANA [Concomitant]
     Dosage: 5 mg, UNK
     Route: 048
  4. PLAQUENIL                          /00072602/ [Concomitant]
     Dosage: 200 mg, UNK
     Route: 048
  5. PREDNISONE [Concomitant]
     Dosage: 2.5 mg, UNK
     Route: 048
  6. PERCOCET                           /00446701/ [Concomitant]
     Route: 048
  7. BACLOFEN [Concomitant]
     Dosage: 20 mg, UNK
     Route: 048
  8. AMBIEN [Concomitant]
     Dosage: 10 mg, UNK
  9. RELAFEN [Concomitant]
     Dosage: 500 mg, UNK
     Route: 048
  10. FOLIC ACID [Concomitant]
     Dosage: 1 mg, UNK
     Route: 048
  11. VITAMIN D /00107901/ [Concomitant]
     Dosage: UNK
     Route: 048

REACTIONS (1)
  - Sinusitis [Unknown]
